FAERS Safety Report 20231687 (Version 1)
Quarter: 2021Q4

REPORT INFORMATION
  Report Type: Spontaneous
  Country: US (occurrence: US)
  Receive Date: 20211227
  Receipt Date: 20211227
  Transmission Date: 20220303
  Serious: No
  Sender: FDA-Public Use
  Company Number: US-AVEO ONCOLOGY-2021-AVEO-US003659

PATIENT

DRUGS (21)
  1. FOTIVDA [Suspect]
     Active Substance: TIVOZANIB HYDROCHLORIDE
     Indication: Renal cell carcinoma
     Dosage: 0.89 MG DAILY FOR 21 DAYS THEN 7 DAYS OFF
     Route: 048
     Dates: start: 20210908
  2. CALCIUM ACETATE [Concomitant]
     Active Substance: CALCIUM ACETATE
  3. VITAMINS [Concomitant]
     Active Substance: VITAMINS
  4. CLOBETASOL [Concomitant]
     Active Substance: CLOBETASOL
  5. CLOTRIMAZOLE [Concomitant]
     Active Substance: CLOTRIMAZOLE
  6. DRONABINOL [Concomitant]
     Active Substance: DRONABINOL
  7. HYDROCORTISONE [Concomitant]
     Active Substance: HYDROCORTISONE
  8. IBUPROFEN [Concomitant]
     Active Substance: IBUPROFEN
  9. MUPIROCIN [Concomitant]
     Active Substance: MUPIROCIN
  10. NYSTATIN [Concomitant]
     Active Substance: NYSTATIN
  11. OMEPRAZOLE [Concomitant]
     Active Substance: OMEPRAZOLE
  12. ROPINIROLE [Concomitant]
     Active Substance: ROPINIROLE
  13. TRIAMCINOLONE [Concomitant]
     Active Substance: TRIAMCINOLONE
  14. VENTOLIN HFA [Concomitant]
     Active Substance: ALBUTEROL SULFATE
  15. VITAMIN B COMPLEX [Concomitant]
     Active Substance: CYANOCOBALAMIN\DEXPANTHENOL\NIACINAMIDE\PYRIDOXINE HYDROCHLORIDE\RIBOFLAVIN 5^-PHOSPHATE SODIUM\THIA
  16. AFRIN [Concomitant]
     Active Substance: OXYMETAZOLINE
  17. VITAMINS [Concomitant]
     Active Substance: VITAMINS
  18. LEVOTHYROXINE [Concomitant]
     Active Substance: LEVOTHYROXINE
  19. FUROSEMIDE [Concomitant]
     Active Substance: FUROSEMIDE
  20. SPIRONOLACTONE [Concomitant]
     Active Substance: SPIRONOLACTONE
  21. BENZONATATE [Concomitant]
     Active Substance: BENZONATATE

REACTIONS (3)
  - Fatigue [Unknown]
  - Aphonia [Unknown]
  - Weight decreased [Unknown]
